FAERS Safety Report 9097973 (Version 1)
Quarter: 2013Q1

REPORT INFORMATION
  Report Type: Spontaneous
  Country: US (occurrence: US)
  Receive Date: 20130212
  Receipt Date: 20130212
  Transmission Date: 20140127
  Serious: No
  Sender: FDA-Public Use
  Company Number: US-PFIZER INC-2013051855

PATIENT
  Age: 46 Year
  Sex: Female

DRUGS (3)
  1. NEURONTIN [Suspect]
     Indication: NERVE INJURY
     Dosage: 600 MG, UNK
     Route: 048
     Dates: end: 20130204
  2. NEURONTIN [Suspect]
     Dosage: 600MG TABLET INTO HALF, UNK
     Route: 048
     Dates: start: 20130204
  3. NEURONTIN [Suspect]
     Indication: NERVE INJURY
     Dosage: 600 MG (2 CAPSULES OF 300MG), 2X/DAY
     Route: 048

REACTIONS (3)
  - Malaise [Unknown]
  - Abdominal discomfort [Unknown]
  - Wrong technique in drug usage process [Unknown]
